FAERS Safety Report 5520213-5 (Version None)
Quarter: 2007Q4

REPORT INFORMATION
  Report Type: 
  Country: None (occurrence: None)
  Receive Date: 20071116
  Receipt Date: 20071108
  Transmission Date: 20080405
  Serious: Yes (Hospitalization, Other)
  Sender: FDA-Public Use
  Company Number: GB-ABBOTT-07P-167-0420306-00

PATIENT
  Sex: Female

DRUGS (11)
  1. KLARICID [Suspect]
     Indication: LOWER RESPIRATORY TRACT INFECTION
     Route: 048
     Dates: start: 20071008
  2. VALPROATE SODIUM [Concomitant]
     Indication: DRUG USE FOR UNKNOWN INDICATION
     Route: 048
  3. LAMOTRIGINE [Concomitant]
     Indication: DRUG USE FOR UNKNOWN INDICATION
     Route: 048
  4. ESOMEPRAZOLE MAGNESIUM [Concomitant]
     Indication: DRUG USE FOR UNKNOWN INDICATION
     Route: 048
  5. DIAZEPAM [Concomitant]
     Indication: DRUG USE FOR UNKNOWN INDICATION
     Route: 048
  6. SOLPADOL EFFERVESCENT 30/500 [Concomitant]
     Indication: ANALGESIA
  7. VALSARTAN [Concomitant]
     Indication: BLOOD PRESSURE
  8. LEVOTHYROXINE SODIUM [Concomitant]
     Indication: THYROID DISORDER
  9. ATORVASTAIN [Concomitant]
     Indication: BLOOD CHOLESTEROL
  10. DIGOXIN [Concomitant]
     Indication: INSOMNIA
  11. ILLEGABLE [Concomitant]
     Indication: INSOMNIA

REACTIONS (2)
  - GRAND MAL CONVULSION [None]
  - TREMOR [None]
